FAERS Safety Report 13288191 (Version 3)
Quarter: 2017Q1

REPORT INFORMATION
  Report Type: Spontaneous
  Country: NZ (occurrence: NZ)
  Receive Date: 20170302
  Receipt Date: 20170308
  Transmission Date: 20170428
  Serious: Yes (Other)
  Sender: FDA-Public Use
  Company Number: AU-009507513-1702NZL008682

PATIENT
  Sex: Male

DRUGS (2)
  1. KEYTRUDA [Suspect]
     Active Substance: PEMBROLIZUMAB
     Indication: BLADDER CANCER
  2. DEXAMETHASONE. [Interacting]
     Active Substance: DEXAMETHASONE
     Dosage: UNK
     Route: 048

REACTIONS (5)
  - Drug effect delayed [Recovered/Resolved]
  - Immunosuppression [Unknown]
  - Inhibitory drug interaction [Recovered/Resolved]
  - Product use issue [Unknown]
  - Adverse event [Unknown]
